FAERS Safety Report 8288233-8 (Version None)
Quarter: 2012Q2

REPORT INFORMATION
  Report Type: 
  Country: None (occurrence: None)
  Receive Date: 20120416
  Receipt Date: 20120405
  Transmission Date: 20120825
  Serious: Yes (Death)
  Sender: FDA-Public Use
  Company Number: US-ROCHE-1057493

PATIENT
  Sex: Male
  Weight: 59.5 kg

DRUGS (11)
  1. PLAVIX [Concomitant]
     Dates: start: 20050715, end: 20120403
  2. AMLODIPINE [Concomitant]
     Dates: start: 19951201, end: 20120403
  3. METHOTREXATE [Suspect]
     Indication: RHEUMATOID ARTHRITIS
     Route: 048
     Dates: start: 20110421
  4. RAMIPRIL [Concomitant]
     Dates: start: 19951201, end: 20120403
  5. DIOVAN HCT [Concomitant]
     Dates: start: 20101015, end: 20120403
  6. PREDNISONE TAB [Concomitant]
     Dates: start: 20100315, end: 20120403
  7. ATELVIA [Concomitant]
     Dates: start: 20110401, end: 20120403
  8. FOLIC ACID [Concomitant]
     Dates: start: 20110421, end: 20120403
  9. CARVEDILOL [Concomitant]
     Dates: start: 20050715, end: 20120403
  10. MIRTAZAPINE [Concomitant]
     Dates: start: 20101015, end: 20120403
  11. ACTEMRA [Suspect]
     Indication: RHEUMATOID ARTHRITIS
     Dosage: LAST DOSE PRIOR TO SAE: 20 MAR 2012
     Route: 042
     Dates: start: 20110421

REACTIONS (1)
  - DEATH [None]
